FAERS Safety Report 7003089-9 (Version None)
Quarter: 2010Q3

REPORT INFORMATION
  Report Type: 
  Country: None (occurrence: None)
  Receive Date: 20100920
  Receipt Date: 20100108
  Transmission Date: 20110219
  Serious: No
  Sender: FDA-Public Use
  Company Number: US-ASTRAZENECA-2010SE00989

PATIENT
  Age: 33 Year
  Sex: Female
  Weight: 81.6 kg

DRUGS (1)
  1. SEROQUEL [Suspect]
     Indication: BIPOLAR DISORDER
     Route: 048
     Dates: start: 20091101

REACTIONS (3)
  - HOT FLUSH [None]
  - HYPERHIDROSIS [None]
  - WEIGHT INCREASED [None]
